FAERS Safety Report 24528552 (Version 1)
Quarter: 2024Q4

REPORT INFORMATION
  Report Type: Spontaneous
  Country: US (occurrence: US)
  Receive Date: 20241021
  Receipt Date: 20241021
  Transmission Date: 20250115
  Serious: Yes (Hospitalization, Other)
  Sender: CADILA
  Company Number: US-CPL-004687

PATIENT
  Age: 45 Year
  Sex: Male

DRUGS (6)
  1. PREGABALIN [Suspect]
     Active Substance: PREGABALIN
     Indication: Drug use disorder
     Dosage: THREE TIMES A DAY
  2. BUPRENORPHINE HYDROCHLORIDE\NALOXONE HYDROCHLORIDE [Suspect]
     Active Substance: BUPRENORPHINE HYDROCHLORIDE\NALOXONE HYDROCHLORIDE
     Indication: Drug use disorder
     Dosage: 16 MG/4 MG
  3. AMITRIPTYLINE [Suspect]
     Active Substance: AMITRIPTYLINE
     Indication: Drug use disorder
  4. FENTANYL [Suspect]
     Active Substance: FENTANYL
     Indication: Drug use disorder
     Dosage: 0.7 TO 1 MCG/KG/H
     Route: 042
  5. PROPOFOL [Concomitant]
     Active Substance: PROPOFOL
     Indication: Sedation
     Dosage: 3 MG/KG/H
  6. FENTANYL [Suspect]
     Active Substance: FENTANYL
     Indication: Sedation
     Dosage: 0.7 TO 1 MCG/KG/H
     Route: 042

REACTIONS (1)
  - Serotonin syndrome [Recovered/Resolved]
